FAERS Safety Report 7872457-5 (Version None)
Quarter: 2011Q4

REPORT INFORMATION
  Report Type: 
  Country: None (occurrence: None)
  Receive Date: 20111030
  Receipt Date: 20110426
  Transmission Date: 20120403
  Serious: No
  Sender: FDA-Public Use
  Company Number: US-AMGEN-USASP2011021725

PATIENT
  Age: 67 Year
  Sex: Female

DRUGS (2)
  1. ENBREL [Suspect]
     Indication: RHEUMATOID ARTHRITIS
     Dosage: 50 MG, QWK
     Dates: start: 20100726, end: 20110425
  2. ENBREL [Suspect]
     Dates: start: 20100726, end: 20110401

REACTIONS (8)
  - WRIST FRACTURE [None]
  - PRODUCTIVE COUGH [None]
  - FALL [None]
  - SINUSITIS [None]
  - WRIST SURGERY [None]
  - HAEMOPTYSIS [None]
  - HYPOAESTHESIA [None]
  - CONTUSION [None]
